FAERS Safety Report 21534613 (Version 5)
Quarter: 2023Q2

REPORT INFORMATION
  Report Type: Spontaneous
  Country: US (occurrence: US)
  Receive Date: 20221101
  Receipt Date: 20230421
  Transmission Date: 20230721
  Serious: Yes (Hospitalization, Other)
  Sender: FDA-Public Use
  Company Number: US-Calliditas-2022CAL00429

PATIENT
  Age: 56 Year
  Sex: Male

DRUGS (2)
  1. TARPEYO [Suspect]
     Active Substance: BUDESONIDE
     Indication: Haematuria
     Dosage: 16 MG ( 4MG CAPSULES) ONCE DAILY
     Route: 048
     Dates: start: 20220521
  2. FARXIGA [Suspect]
     Active Substance: DAPAGLIFLOZIN PROPANEDIOL
     Indication: Product used for unknown indication

REACTIONS (8)
  - Anger [Unknown]
  - Muscle spasms [Unknown]
  - Heart rate increased [Unknown]
  - Condition aggravated [Unknown]
  - Ventricular tachycardia [Unknown]
  - Weight increased [Unknown]
  - Heart rate irregular [Unknown]
  - Post procedural complication [Unknown]

NARRATIVE: CASE EVENT DATE: 20220801
